FAERS Safety Report 22998388 (Version 2)
Quarter: 2023Q4

REPORT INFORMATION
  Report Type: Spontaneous
  Country: CL (occurrence: CL)
  Receive Date: 20230928
  Receipt Date: 20231024
  Transmission Date: 20240109
  Serious: Yes (Death)
  Sender: FDA-Public Use
  Company Number: CL-BoehringerIngelheim-2023-BI-263650

PATIENT
  Age: 92 Year
  Sex: Male

DRUGS (1)
  1. PRADAXA [Suspect]
     Active Substance: DABIGATRAN ETEXILATE MESYLATE
     Indication: Product used for unknown indication
     Dates: start: 202306

REACTIONS (10)
  - General physical health deterioration [Fatal]
  - Gastrointestinal haemorrhage [Fatal]
  - Melaena [Fatal]
  - Coagulopathy [Fatal]
  - Anaemia [Fatal]
  - Asthenia [Unknown]
  - Hypotension [Unknown]
  - Tachycardia [Unknown]
  - Hypoperfusion [Unknown]
  - Somnolence [Unknown]
